FAERS Safety Report 4489511-0 (Version None)
Quarter: 2004Q4

REPORT INFORMATION
  Report Type: 
  Country: None (occurrence: None)
  Receive Date: 20041028
  Receipt Date: 20041018
  Transmission Date: 20050328
  Serious: Yes (Other)
  Sender: FDA-Public Use
  Company Number: HQWYE879019OCT04

PATIENT
  Age: 46 Year
  Sex: Female

DRUGS (3)
  1. EFFEXOR XR [Suspect]
     Indication: DEPRESSION
     Dosage: 75 MG 1X PER 1 DAY ORAL; 75 MG 1X PER 2 DAY ORAL; 75 MG 1X PER 3 DAY ORAL
     Route: 048
     Dates: start: 20040101, end: 20040101
  2. EFFEXOR XR [Suspect]
     Indication: DEPRESSION
     Dosage: 75 MG 1X PER 1 DAY ORAL; 75 MG 1X PER 2 DAY ORAL; 75 MG 1X PER 3 DAY ORAL
     Route: 048
     Dates: start: 20040601, end: 20040101
  3. EFFEXOR XR [Suspect]
     Indication: DEPRESSION
     Dosage: 75 MG 1X PER 1 DAY ORAL; 75 MG 1X PER 2 DAY ORAL; 75 MG 1X PER 3 DAY ORAL
     Route: 048
     Dates: start: 20040101

REACTIONS (3)
  - DRUG WITHDRAWAL SYNDROME [None]
  - PSYCHIATRIC SYMPTOM [None]
  - SUICIDAL IDEATION [None]
